FAERS Safety Report 24380050 (Version 3)
Quarter: 2024Q4

REPORT INFORMATION
  Report Type: Spontaneous
  Country: US (occurrence: US)
  Receive Date: 20240930
  Receipt Date: 20241126
  Transmission Date: 20250115
  Serious: No
  Sender: SUNOVION
  Company Number: US-SMPA-2024SPA002642AA

PATIENT

DRUGS (2)
  1. ORGOVYX [Suspect]
     Active Substance: RELUGOLIX
     Indication: Prostate cancer
     Dosage: 360 MG, SINGLE
     Route: 048
     Dates: start: 20231016, end: 20231016
  2. ORGOVYX [Suspect]
     Active Substance: RELUGOLIX
     Dosage: 120 MG, QD
     Route: 048
     Dates: start: 20231017

REACTIONS (11)
  - Peripheral swelling [Unknown]
  - Muscular weakness [Unknown]
  - Pyrexia [Unknown]
  - Cardiac murmur [Unknown]
  - Weight increased [Unknown]
  - Hot flush [Unknown]
  - Fatigue [Unknown]
  - Diarrhoea [Unknown]
  - Hyperhidrosis [Unknown]
  - Insomnia [Unknown]
  - Myalgia [Unknown]
